FAERS Safety Report 4426244-0 (Version None)
Quarter: 2004Q3

REPORT INFORMATION
  Report Type: 
  Country: None (occurrence: None)
  Receive Date: 20040811
  Receipt Date: 20040729
  Transmission Date: 20050211
  Serious: Yes (Other)
  Sender: FDA-Public Use
  Company Number: 2004226397US

PATIENT
  Age: 53 Year
  Sex: Female

DRUGS (3)
  1. PROVERA [Suspect]
     Dates: start: 19930901, end: 20000201
  2. PREMARIN [Suspect]
     Dates: start: 19930901, end: 20000201
  3. PREMPRO [Suspect]
     Dates: start: 19970401, end: 20000201

REACTIONS (1)
  - BREAST CANCER FEMALE [None]
